FAERS Safety Report 22189830 (Version 1)
Quarter: 2023Q2

REPORT INFORMATION
  Report Type: Other
  Country: IN (occurrence: None)
  Receive Date: 20230410
  Receipt Date: 20230410
  Transmission Date: 20230721
  Serious: Yes (Death)
  Sender: FDA-Public Use
  Company Number: IN-ROCHE-3326206

PATIENT
  Age: 56 Year
  Sex: Male

DRUGS (5)
  1. MYCOPHENOLATE MOFETIL [Suspect]
     Active Substance: MYCOPHENOLATE MOFETIL
     Indication: Liver transplant
     Dosage: 750 MG (500T+250 C) -0- 750 MG (500 T+250 C)
     Route: 048
     Dates: start: 20220202
  2. MYCOPHENOLATE MOFETIL [Suspect]
     Active Substance: MYCOPHENOLATE MOFETIL
     Indication: Liver transplant
     Route: 048
     Dates: start: 20220202
  3. URSODIOL [Concomitant]
     Active Substance: URSODIOL
  4. ZINCOVIT [Concomitant]
  5. PREDNISOLONE [Concomitant]
     Active Substance: PREDNISOLONE

REACTIONS (2)
  - Pneumonia [Fatal]
  - Lung disorder [Fatal]

NARRATIVE: CASE EVENT DATE: 20230322
